FAERS Safety Report 5978704-9 (Version None)
Quarter: 2008Q4

REPORT INFORMATION
  Report Type: 
  Country: None (occurrence: None)
  Receive Date: 20081204
  Receipt Date: 20081124
  Transmission Date: 20090506
  Serious: Yes (Hospitalization)
  Sender: FDA-Public Use
  Company Number: US-AMGEN-QUU320731

PATIENT
  Sex: Female

DRUGS (1)
  1. ENBREL [Suspect]
     Indication: RHEUMATOID ARTHRITIS
     Route: 058
     Dates: start: 19990601

REACTIONS (6)
  - ABDOMINAL ADHESIONS [None]
  - ASTHMA [None]
  - BRONCHITIS [None]
  - CONTUSION [None]
  - SINUSITIS [None]
  - SKIN HAEMORRHAGE [None]
